FAERS Safety Report 17362047 (Version 30)
Quarter: 2024Q4

REPORT INFORMATION
  Report Type: Report from Study
  Country: CA (occurrence: CA)
  Receive Date: 20200203
  Receipt Date: 20241016
  Transmission Date: 20250115
  Serious: Yes (Hospitalization)
  Sender: NOVARTIS
  Company Number: PHHY2019CA198323

PATIENT
  Age: 5 Year
  Sex: Male

DRUGS (18)
  1. ILARIS [Suspect]
     Active Substance: CANAKINUMAB
     Indication: Mevalonate kinase deficiency
     Dosage: 75 MG, EVERY 4 WEEKS
     Route: 058
     Dates: start: 20190710
  2. ILARIS [Suspect]
     Active Substance: CANAKINUMAB
     Indication: Blood immunoglobulin D increased
     Dosage: 45 MG, Q4W
     Route: 058
     Dates: start: 20190808
  3. ILARIS [Suspect]
     Active Substance: CANAKINUMAB
     Dosage: 45 MG, Q4W
     Route: 058
     Dates: start: 20191004
  4. ILARIS [Suspect]
     Active Substance: CANAKINUMAB
     Dosage: 55 MG, Q4W
     Route: 058
     Dates: start: 20191108, end: 20191206
  5. ILARIS [Suspect]
     Active Substance: CANAKINUMAB
     Dosage: 55 MG, Q4W
     Route: 058
     Dates: start: 20191218
  6. ILARIS [Suspect]
     Active Substance: CANAKINUMAB
     Dosage: UNK
     Route: 065
     Dates: start: 20200131
  7. ILARIS [Suspect]
     Active Substance: CANAKINUMAB
     Dosage: 55 MG, Q4W
     Route: 058
     Dates: start: 20200329
  8. ILARIS [Suspect]
     Active Substance: CANAKINUMAB
     Dosage: 55 MG, Q4W
     Route: 065
     Dates: start: 20200428
  9. ILARIS [Suspect]
     Active Substance: CANAKINUMAB
     Dosage: 55 MG, Q4W
     Route: 058
     Dates: start: 20200525
  10. ILARIS [Suspect]
     Active Substance: CANAKINUMAB
     Dosage: UNK, Q4W
     Route: 065
  11. ILARIS [Suspect]
     Active Substance: CANAKINUMAB
     Dosage: 75 MG, EVERY 3 WEEKS
     Route: 058
     Dates: start: 20200817
  12. ILARIS [Suspect]
     Active Substance: CANAKINUMAB
     Dosage: 75 MG, EVERY 3 WEEKS
     Route: 058
  13. ILARIS [Suspect]
     Active Substance: CANAKINUMAB
     Dosage: UNK
     Route: 065
     Dates: start: 20210222
  14. ILARIS [Suspect]
     Active Substance: CANAKINUMAB
     Dosage: UNK
     Route: 065
     Dates: start: 20210316
  15. ILARIS [Suspect]
     Active Substance: CANAKINUMAB
     Dosage: UNK
     Route: 065
     Dates: start: 20210625
  16. ILARIS [Suspect]
     Active Substance: CANAKINUMAB
     Dosage: 75 MG, PRN
     Route: 058
     Dates: start: 20190710
  17. ILARIS [Suspect]
     Active Substance: CANAKINUMAB
     Dosage: 150 MG, PRN
     Route: 058
  18. ILARIS [Suspect]
     Active Substance: CANAKINUMAB
     Dosage: 150 MG, 6 WEEKS
     Route: 065
     Dates: start: 20241010

REACTIONS (21)
  - Pyrexia [Recovered/Resolved]
  - Influenza [Unknown]
  - Pyrexia [Recovered/Resolved]
  - Blood pressure abnormal [Unknown]
  - Nausea [Unknown]
  - Blood pressure systolic increased [Unknown]
  - Paraesthesia [Unknown]
  - Condition aggravated [Unknown]
  - Chills [Recovering/Resolving]
  - Arthralgia [Recovered/Resolved]
  - Inflammatory marker increased [Unknown]
  - Feeling abnormal [Recovered/Resolved]
  - Pyrexia [Recovering/Resolving]
  - Respiratory rate increased [Unknown]
  - Vomiting [Unknown]
  - Malaise [Unknown]
  - Rhinovirus infection [Unknown]
  - Ear infection [Unknown]
  - Inappropriate schedule of product administration [Unknown]
  - Product storage error [Unknown]
  - Off label use [Unknown]

NARRATIVE: CASE EVENT DATE: 20190801
